FAERS Safety Report 23235646 (Version 5)
Quarter: 2025Q1

REPORT INFORMATION
  Report Type: Spontaneous
  Country: US (occurrence: US)
  Receive Date: 20231128
  Receipt Date: 20250213
  Transmission Date: 20250408
  Serious: No
  Sender: PFIZER
  Company Number: US-PFIZER INC-PV202300191815

PATIENT
  Age: 71 Year
  Sex: Female

DRUGS (4)
  1. BOSULIF [Suspect]
     Active Substance: BOSUTINIB MONOHYDRATE
     Indication: Acute lymphocytic leukaemia (in remission)
     Route: 048
  2. BOSULIF [Suspect]
     Active Substance: BOSUTINIB MONOHYDRATE
  3. BOSULIF [Suspect]
     Active Substance: BOSUTINIB MONOHYDRATE
     Dosage: 300 MG (3 TABLETS), DAILY
     Route: 048
     Dates: start: 20231027
  4. BOSULIF [Suspect]
     Active Substance: BOSUTINIB MONOHYDRATE
     Dosage: TAKE 3 TABLETSB (300 MG TOTAL) BY MOUTH TAKE WITH FOOD SWALLOW WHOLE
     Route: 048

REACTIONS (3)
  - Off label use [Unknown]
  - Diarrhoea [Unknown]
  - Neoplasm recurrence [Unknown]

NARRATIVE: CASE EVENT DATE: 20231027
